FAERS Safety Report 12461787 (Version 4)
Quarter: 2016Q3

REPORT INFORMATION
  Report Type: Spontaneous
  Country: US (occurrence: US)
  Receive Date: 20160613
  Receipt Date: 20160914
  Transmission Date: 20161109
  Serious: Yes (Hospitalization, Other)
  Sender: FDA-Public Use
  Company Number: US-ACTELION-A-NJ2016-137253

PATIENT
  Age: 76 Year
  Sex: Female

DRUGS (2)
  1. RIOCIGUAT [Concomitant]
     Active Substance: RIOCIGUAT
     Dosage: UNK
     Dates: end: 201607
  2. OPSUMIT [Suspect]
     Active Substance: MACITENTAN
     Indication: PULMONARY ARTERIAL HYPERTENSION
     Dosage: 10 MG, QD
     Route: 048
     Dates: start: 20160531

REACTIONS (13)
  - Haematocrit decreased [Unknown]
  - Headache [Unknown]
  - Tachycardia [Unknown]
  - Anaemia [Unknown]
  - Oedema [Unknown]
  - Dyspnoea [Unknown]
  - Pyrexia [Unknown]
  - Sepsis [Unknown]
  - Small intestinal haemorrhage [Unknown]
  - Weight increased [Unknown]
  - Transfusion [Unknown]
  - Gastrointestinal haemorrhage [Unknown]
  - Nasal congestion [Unknown]
